FAERS Safety Report 13496656 (Version 3)
Quarter: 2017Q3

REPORT INFORMATION
  Report Type: Spontaneous
  Country: US (occurrence: US)
  Receive Date: 20170428
  Receipt Date: 20170731
  Transmission Date: 20171127
  Serious: No
  Sender: FDA-Public Use
  Company Number: US-JAZZ-2017-US-004081

PATIENT
  Sex: Female

DRUGS (30)
  1. XYREM [Suspect]
     Active Substance: SODIUM OXYBATE
     Indication: NARCOLEPSY
     Dosage: 2G, BID
     Route: 048
     Dates: start: 201108, end: 2011
  2. ATORVASTATIN [Concomitant]
     Active Substance: ATORVASTATIN
  3. BUTORPHANOL [Concomitant]
     Active Substance: BUTORPHANOL
  4. FIORICET [Concomitant]
     Active Substance: ACETAMINOPHEN\BUTALBITAL\CAFFEINE
  5. ZOLOFT [Concomitant]
     Active Substance: SERTRALINE HYDROCHLORIDE
  6. RITALIN [Concomitant]
     Active Substance: METHYLPHENIDATE HYDROCHLORIDE
  7. XYREM [Suspect]
     Active Substance: SODIUM OXYBATE
     Indication: CATAPLEXY
     Dosage: 3G, BID
     Route: 048
     Dates: start: 201109, end: 201501
  8. AMBIEN [Concomitant]
     Active Substance: ZOLPIDEM TARTRATE
  9. PROVIGIL [Concomitant]
     Active Substance: MODAFINIL
  10. TRILEPTAL [Concomitant]
     Active Substance: OXCARBAZEPINE
  11. WELLBUTRIN [Concomitant]
     Active Substance: BUPROPION HYDROCHLORIDE
  12. XYREM [Suspect]
     Active Substance: SODIUM OXYBATE
     Dosage: 4.5G, BID
     Route: 048
     Dates: start: 201702
  13. ATIVAN [Concomitant]
     Active Substance: LORAZEPAM
  14. XANAX [Concomitant]
     Active Substance: ALPRAZOLAM
  15. VENLAFAXINE HCL [Concomitant]
     Active Substance: VENLAFAXINE HYDROCHLORIDE
  16. ABILIFY [Concomitant]
     Active Substance: ARIPIPRAZOLE
  17. PRILOSEC [Concomitant]
     Active Substance: OMEPRAZOLE MAGNESIUM
  18. NEXIUM [Concomitant]
     Active Substance: ESOMEPRAZOLE MAGNESIUM
  19. KLONOPIN [Concomitant]
     Active Substance: CLONAZEPAM
  20. XYREM [Suspect]
     Active Substance: SODIUM OXYBATE
     Dosage: 2.25G, BID
     Route: 048
     Dates: start: 201611, end: 2016
  21. VITAMIN B12 [Concomitant]
     Active Substance: CYANOCOBALAMIN
  22. NITROGLYCERIN. [Concomitant]
     Active Substance: NITROGLYCERIN
  23. TOPAMAX [Concomitant]
     Active Substance: TOPIRAMATE
  24. XYREM [Suspect]
     Active Substance: SODIUM OXYBATE
     Dosage: DOSE ADJUSTMENT
     Route: 048
     Dates: start: 201611, end: 201701
  25. VITAMIN D3 [Concomitant]
     Active Substance: CHOLECALCIFEROL
  26. ASPIRIN 81 [Concomitant]
     Active Substance: ASPIRIN
  27. PREVACID [Concomitant]
     Active Substance: LANSOPRAZOLE
  28. PROZAC [Concomitant]
     Active Substance: FLUOXETINE HYDROCHLORIDE
  29. RESTASIS [Concomitant]
     Active Substance: CYCLOSPORINE
  30. EFFEXOR [Concomitant]
     Active Substance: VENLAFAXINE HYDROCHLORIDE

REACTIONS (3)
  - Feeling jittery [Unknown]
  - Tremor [Unknown]
  - Influenza [Unknown]

NARRATIVE: CASE EVENT DATE: 2017
